FAERS Safety Report 10996877 (Version 1)
Quarter: 2015Q2

REPORT INFORMATION
  Report Type: Spontaneous
  Country: FI (occurrence: FI)
  Receive Date: 20150408
  Receipt Date: 20150408
  Transmission Date: 20150821
  Serious: Yes (Disabling)
  Sender: FDA-Public Use
  Company Number: FI-JNJFOC-20150319467

PATIENT
  Age: 34 Year
  Sex: Female

DRUGS (1)
  1. VERMOX [Suspect]
     Active Substance: MEBENDAZOLE
     Indication: ENTEROBIASIS
     Route: 048
     Dates: start: 20150311, end: 20150311

REACTIONS (2)
  - Rash [Not Recovered/Not Resolved]
  - Skin exfoliation [Not Recovered/Not Resolved]

NARRATIVE: CASE EVENT DATE: 20150311
